FAERS Safety Report 24147274 (Version 3)
Quarter: 2024Q3

REPORT INFORMATION
  Report Type: Spontaneous
  Country: US (occurrence: US)
  Receive Date: 20240729
  Receipt Date: 20240816
  Transmission Date: 20241017
  Serious: Yes (Life-Threatening)
  Sender: CSL BEHRING
  Company Number: US-BEH-2024176402

PATIENT
  Age: 16 Year
  Sex: Female
  Weight: 49.887 kg

DRUGS (3)
  1. HUMATE-P [Suspect]
     Active Substance: HUMAN COAGULATION FACTOR VIII/VON WILLEBRAND FACTOR COMPLEX
     Indication: Von Willebrand^s disease
     Dosage: 2500 IU, BIW
     Route: 042
  2. HUMATE-P [Suspect]
     Active Substance: HUMAN COAGULATION FACTOR VIII/VON WILLEBRAND FACTOR COMPLEX
     Dosage: 2500 IU, BIW
     Route: 042
  3. WILATE - VON WILLEBRAND FACTOR/COAGULATION FACTOR VIII COMPLEX (HUMAN) [Suspect]
     Active Substance: HUMAN COAGULATION FACTOR VIII/VON WILLEBRAND FACTOR COMPLEX
     Indication: Product used for unknown indication
     Route: 065

REACTIONS (5)
  - Anaphylactic reaction [Unknown]
  - Dizziness [Unknown]
  - Haemorrhage [Unknown]
  - Dyspnoea [Unknown]
  - Throat tightness [Unknown]

NARRATIVE: CASE EVENT DATE: 20240722
